FAERS Safety Report 10634036 (Version 1)
Quarter: 2014Q4

REPORT INFORMATION
  Report Type: Spontaneous
  Country: US (occurrence: None)
  Receive Date: 20141203
  Receipt Date: 20141203
  Transmission Date: 20150529
  Serious: No
  Sender: FDA-Public Use
  Company Number: None

PATIENT
  Age: 48 Year
  Sex: Male
  Weight: 89.81 kg

DRUGS (1)
  1. FENOFIBRATE. [Suspect]
     Active Substance: FENOFIBRATE
     Indication: HYPERTRIGLYCERIDAEMIA
     Dosage: APPROX 1 MONTH STOPPED
     Route: 048
     Dates: start: 20140918

REACTIONS (3)
  - Drug intolerance [None]
  - Abdominal discomfort [None]
  - Dyspepsia [None]

NARRATIVE: CASE EVENT DATE: 20140918
